FAERS Safety Report 9216830 (Version 2)
Quarter: 2013Q3

REPORT INFORMATION
  Report Type: Spontaneous
  Country: US (occurrence: None)
  Receive Date: 20130403
  Receipt Date: 20130815
  Transmission Date: 20140515
  Serious: Yes (Other)
  Sender: FDA-Public Use
  Company Number: ADR-2012-01864

PATIENT
  Age: 23 Year
  Sex: Male

DRUGS (1)
  1. BACLOFEN [Suspect]
     Indication: MUSCLE SPASTICITY

REACTIONS (8)
  - Dizziness [None]
  - Headache [None]
  - Sinusitis [None]
  - Product quality issue [None]
  - Dizziness [None]
  - Nausea [None]
  - Nasal congestion [None]
  - Flushing [None]
